FAERS Safety Report 4629344-5 (Version None)
Quarter: 2005Q2

REPORT INFORMATION
  Report Type: 
  Country: None (occurrence: None)
  Receive Date: 20050404
  Receipt Date: 20050314
  Transmission Date: 20051028
  Serious: Yes (Death)
  Sender: FDA-Public Use
  Company Number: B0374525A

PATIENT
  Age: 24 Month
  Sex: Male

DRUGS (4)
  1. THIOGUANINE [Suspect]
     Indication: ACUTE LYMPHOCYTIC LEUKAEMIA
     Dosage: 40 MG/M2/PER DAY/ORAL
     Route: 048
  2. VINCRISTINE [Suspect]
     Dosage: 1.5 MG/M2 / SINGLE DOSE / INTRAVENOUS
     Route: 042
  3. DEXAMETHASONE [Suspect]
     Dosage: 6.5 MG/M2 / ORAL
     Route: 048
  4. METHOTREXATE [Suspect]
     Dosage: 25 MG/M2 / WEEKLY / ORAL
     Route: 048

REACTIONS (17)
  - ADENOVIRUS INFECTION [None]
  - COAGULOPATHY [None]
  - CULTURE STOOL POSITIVE [None]
  - CULTURE THROAT POSITIVE [None]
  - DIARRHOEA [None]
  - EPIDERMAL NECROSIS [None]
  - GENERAL PHYSICAL HEALTH DETERIORATION [None]
  - HEPATIC ENCEPHALOPATHY [None]
  - HEPATIC FAILURE [None]
  - HEPATITIS FULMINANT [None]
  - HEPATOSPLENOMEGALY [None]
  - PANCYTOPENIA [None]
  - PRODUCTIVE COUGH [None]
  - RASH VESICULAR [None]
  - THERAPY NON-RESPONDER [None]
  - VENOOCCLUSIVE LIVER DISEASE [None]
  - VIRUS SEROLOGY TEST POSITIVE [None]
